FAERS Safety Report 13996457 (Version 1)
Quarter: 2017Q3

REPORT INFORMATION
  Report Type: Spontaneous
  Country: US (occurrence: US)
  Receive Date: 20170921
  Receipt Date: 20170921
  Transmission Date: 20171128
  Serious: No
  Sender: FDA-Public Use
  Company Number: US-ASTRAZENECA-2017SE95431

PATIENT
  Age: 20237 Day
  Sex: Female
  Weight: 113.4 kg

DRUGS (1)
  1. BYDUREON [Suspect]
     Active Substance: EXENATIDE
     Indication: TYPE 2 DIABETES MELLITUS
     Route: 058
     Dates: start: 20170916

REACTIONS (3)
  - Wrong technique in device usage process [Recovered/Resolved]
  - Product quality issue [Unknown]
  - Confusional state [Unknown]

NARRATIVE: CASE EVENT DATE: 20170916
